FAERS Safety Report 4827800-8 (Version None)
Quarter: 2005Q4

REPORT INFORMATION
  Report Type: 
  Country: None (occurrence: None)
  Receive Date: 20051110
  Receipt Date: 20051031
  Transmission Date: 20060501
  Serious: Yes (Hospitalization)
  Sender: FDA-Public Use
  Company Number: SUS1-2005-00802

PATIENT
  Age: 7 Year
  Sex: Male

DRUGS (2)
  1. ADDERALL 10 [Suspect]
     Dates: start: 20050901, end: 20051001
  2. CONCERTA [Concomitant]

REACTIONS (1)
  - STEVENS-JOHNSON SYNDROME [None]
